FAERS Safety Report 19515448 (Version 1)
Quarter: 2021Q3

REPORT INFORMATION
  Report Type: Spontaneous
  Country: FR (occurrence: FR)
  Receive Date: 20210710
  Receipt Date: 20210710
  Transmission Date: 20211014
  Serious: Yes (Hospitalization)
  Sender: FDA-Public Use
  Company Number: NVSC2021FR149268

PATIENT
  Age: 73 Year
  Sex: Female
  Weight: 104 kg

DRUGS (2)
  1. LORAZEPAM. [Suspect]
     Active Substance: LORAZEPAM
     Indication: POISONING DELIBERATE
     Dosage: UNK (PRISE UNIQUE)
     Route: 048
     Dates: start: 20210512, end: 20210512
  2. PROPRANOLOL [Suspect]
     Active Substance: PROPRANOLOL HYDROCHLORIDE
     Indication: POISONING DELIBERATE
     Dosage: UNK (PRISE UNIQUE)
     Route: 048
     Dates: start: 20210512, end: 20210512

REACTIONS (3)
  - Altered state of consciousness [Recovered/Resolved]
  - Oxygen saturation decreased [Recovered/Resolved]
  - Hypotension [Recovered/Resolved]

NARRATIVE: CASE EVENT DATE: 20210512
